FAERS Safety Report 17757100 (Version 1)
Quarter: 2020Q2

REPORT INFORMATION
  Report Type: Spontaneous
  Country: US (occurrence: US)
  Receive Date: 20200507
  Receipt Date: 20200507
  Transmission Date: 20200714
  Serious: Yes (Other)
  Sender: FDA-Public Use
  Company Number: US-GILEAD-2020-0463387

PATIENT
  Age: 65 Year
  Sex: Male

DRUGS (1)
  1. HARVONI [Suspect]
     Active Substance: LEDIPASVIR\SOFOSBUVIR
     Indication: HEPATITIS C
     Dosage: UNK
     Route: 065
     Dates: start: 201902

REACTIONS (6)
  - Deep vein thrombosis [Unknown]
  - Suspected COVID-19 [Unknown]
  - Pyrexia [Unknown]
  - Pain in extremity [Unknown]
  - Chills [Unknown]
  - Lung disorder [Unknown]

NARRATIVE: CASE EVENT DATE: 201911
